FAERS Safety Report 8996614 (Version 1)
Quarter: 2013Q1

REPORT INFORMATION
  Report Type: Spontaneous
  Country: US (occurrence: US)
  Receive Date: 20130104
  Receipt Date: 20130104
  Transmission Date: 20140127
  Serious: Yes (Hospitalization)
  Sender: FDA-Public Use
  Company Number: US-TEVA-378486USA

PATIENT
  Age: 9 Year
  Sex: Female

DRUGS (10)
  1. MORPHINE SULFATE [Suspect]
     Indication: ARTHRALGIA
     Route: 042
  2. HYDROMORPHONE [Suspect]
     Indication: PAIN
     Dosage: BASAL PCA RATE 0.2 MG/H
     Route: 065
  3. HYDROMORPHONE [Suspect]
     Indication: PAIN
     Dosage: PCA BOLUS OF 0.2MG EVERY 2 HOURS FOR BREAKTHROUGH PAINT
     Route: 065
  4. FENTANYL [Suspect]
     Dosage: BASAL PCA RATE 30 MICROG/H
     Route: 065
  5. KETOROLAC [Concomitant]
     Indication: ARTHRALGIA
     Route: 042
  6. AMOXICILLIN/CLAVULANIC ACID [Concomitant]
     Indication: SINUSITIS
     Route: 065
  7. METHOTREXATE [Concomitant]
     Route: 065
  8. NAPROXEN [Concomitant]
     Route: 065
  9. ETANERCEPT [Concomitant]
     Indication: JOINT SWELLING
     Route: 065
  10. LORAZEPAM [Concomitant]
     Indication: AGITATION
     Route: 065

REACTIONS (1)
  - Hyperaesthesia [Recovering/Resolving]
